FAERS Safety Report 6276124-3 (Version None)
Quarter: 2009Q3

REPORT INFORMATION
  Report Type: 
  Country: None (occurrence: None)
  Receive Date: 20090717
  Receipt Date: 20090717
  Transmission Date: 20100115
  Serious: No
  Sender: FDA-Public Use
  Company Number: None

PATIENT
  Age: 63 Year
  Sex: Female
  Weight: 61.2356 kg

DRUGS (2)
  1. TARGET BRAND SALINE NASAL SPRAY, MFG. BY ACCUMED EXP. DATE 08/2010 UPC [Suspect]
     Indication: NASAL CONGESTION
     Dosage: TWO SQUIRTS PER NOSTRIL AS NEEDED
     Dates: start: 20090604
  2. TARGET BRAND SALINE NASAL SPRAY, MFG. BY ACCUMED EXP. DATE 08/2010 UPC [Suspect]
     Indication: NASAL DRYNESS
     Dosage: TWO SQUIRTS PER NOSTRIL AS NEEDED
     Dates: start: 20090604

REACTIONS (2)
  - EPISTAXIS [None]
  - NASAL DISCOMFORT [None]
